FAERS Safety Report 19823629 (Version 2)
Quarter: 2021Q3

REPORT INFORMATION
  Report Type: Report from Study
  Country: CN (occurrence: CN)
  Receive Date: 20210913
  Receipt Date: 20210922
  Transmission Date: 20211014
  Serious: Yes (Congenital Anomaly)
  Sender: FDA-Public Use
  Company Number: CN-GILEAD-2021-0547714

PATIENT

DRUGS (1)
  1. TENOFOVIR ALAFENAMIDE [Suspect]
     Active Substance: TENOFOVIR ALAFENAMIDE
     Indication: HEPATITIS B
     Dosage: 25 MG, QD
     Route: 064
     Dates: start: 20210704, end: 20210820

REACTIONS (2)
  - Foetal heart rate abnormal [Unknown]
  - Foetal exposure during pregnancy [Recovered/Resolved]

NARRATIVE: CASE EVENT DATE: 20210704
